FAERS Safety Report 16729173 (Version 3)
Quarter: 2019Q4

REPORT INFORMATION
  Report Type: Report from Study
  Country: None (occurrence: US)
  Receive Date: 20190822
  Receipt Date: 20191001
  Transmission Date: 20200122
  Serious: Yes (Other)
  Sender: FDA-Public Use
  Company Number: US-ABBVIE-19K-163-2896609-00

PATIENT
  Sex: Female
  Weight: 63.11 kg

DRUGS (1)
  1. HUMIRA [Suspect]
     Active Substance: ADALIMUMAB
     Indication: RHEUMATOID ARTHRITIS
     Route: 058
     Dates: start: 2018

REACTIONS (5)
  - Chronic kidney disease [Unknown]
  - Spinal stenosis [Not Recovered/Not Resolved]
  - Musculoskeletal pain [Unknown]
  - Intervertebral disc protrusion [Unknown]
  - Sciatica [Recovering/Resolving]

NARRATIVE: CASE EVENT DATE: 2019
